FAERS Safety Report 9565389 (Version 1)
Quarter: 2013Q3

REPORT INFORMATION
  Report Type: Spontaneous
  Country: NO (occurrence: NO)
  Receive Date: 20130930
  Receipt Date: 20130930
  Transmission Date: 20140515
  Serious: Yes (Life-Threatening, Hospitalization)
  Sender: FDA-Public Use
  Company Number: NO-TEVA-433857ISR

PATIENT
  Age: 83 Year
  Sex: Female

DRUGS (6)
  1. METOPROLOL [Suspect]
     Indication: HYPERTENSION
     Dosage: 200 MILLIGRAM DAILY;
     Route: 048
     Dates: end: 20130411
  2. DONEPEZIL [Interacting]
     Indication: DEMENTIA ALZHEIMER^S TYPE
     Route: 048
  3. DONEPEZIL [Interacting]
     Dosage: 10 MILLIGRAM DAILY;
     Route: 048
     Dates: start: 20130304, end: 20130411
  4. ENALAPRIL COMP. [Concomitant]
     Indication: HYPERTENSION
     Dosage: 1 DOSAGE FORMS DAILY; 20 MG ENALAPRIL/12.5 MG HYDROCHLOROTIAZIDE
  5. ALENDRONIC ACID [Concomitant]
     Indication: OSTEOPOROSIS
  6. OVESTERIN [Concomitant]
     Indication: OSTEOPOROSIS
     Dosage: 1 MILLIGRAM DAILY;

REACTIONS (9)
  - Atrioventricular block [Not Recovered/Not Resolved]
  - Bradycardia [Not Recovered/Not Resolved]
  - Chest pain [Not Recovered/Not Resolved]
  - Dyspnoea [Not Recovered/Not Resolved]
  - Nausea [Not Recovered/Not Resolved]
  - Fatigue [Not Recovered/Not Resolved]
  - Decreased appetite [Not Recovered/Not Resolved]
  - Decreased appetite [Not Recovered/Not Resolved]
  - Drug interaction [Not Recovered/Not Resolved]
